FAERS Safety Report 14034129 (Version 1)
Quarter: 2017Q4

REPORT INFORMATION
  Report Type: Spontaneous
  Country: US (occurrence: US)
  Receive Date: 20171002
  Receipt Date: 20171002
  Transmission Date: 20180321
  Serious: Yes (Disabling, Other)
  Sender: FDA-Public Use
  Company Number: None

PATIENT
  Age: 60 Year
  Sex: Female

DRUGS (1)
  1. TRIAMCINOLONE/MOXIFLOXACIN [Suspect]
     Active Substance: MOXIFLOXACIN\TRIAMCINOLONE
     Indication: CATARACT OPERATION
     Route: 031

REACTIONS (2)
  - Vision blurred [None]
  - Post procedural complication [None]

NARRATIVE: CASE EVENT DATE: 20170901
